FAERS Safety Report 4726075-8 (Version None)
Quarter: 2005Q3

REPORT INFORMATION
  Report Type: 
  Country: None (occurrence: None)
  Receive Date: 20050726
  Receipt Date: 20050726
  Transmission Date: 20060218
  Serious: Yes (Hospitalization)
  Sender: FDA-Public Use
  Company Number: None

PATIENT
  Sex: Female
  Weight: 48.0813 kg

DRUGS (7)
  1. GEMCITABINE LILLY + B MYERS [Suspect]
     Indication: PANCREATIC CARCINOMA
     Dosage: 1000MG/M2 + DAY 1 + 15 INTRAVENOUS
     Route: 042
     Dates: start: 20050210, end: 20050707
  2. CISPLATIN [Suspect]
     Indication: PANCREATIC CARCINOMA
     Dosage: 1000MG/M2 + DAY 1+15 INTRAVENOUS
     Route: 042
     Dates: start: 20050210, end: 20050707
  3. BEVACIZUMAB 25MG/ML [Suspect]
     Indication: PANCREATIC CARCINOMA
     Dosage: 10MG/KG DAY 1 + 15 INTRAVENOUS
     Route: 042
     Dates: start: 20050210, end: 20050707
  4. M.V.I. [Concomitant]
  5. ESTROGEN PATCH [Concomitant]
  6. PHYTOZYME [Concomitant]
  7. K-DUR 10 [Concomitant]

REACTIONS (5)
  - ABDOMINAL DISTENSION [None]
  - DEHYDRATION [None]
  - DUODENAL OBSTRUCTION [None]
  - GASTRIC DISORDER [None]
  - HYPOKALAEMIA [None]
